FAERS Safety Report 20778282 (Version 3)
Quarter: 2022Q2

REPORT INFORMATION
  Report Type: Spontaneous
  Country: DE (occurrence: DE)
  Receive Date: 20220503
  Receipt Date: 20220519
  Transmission Date: 20220721
  Serious: Yes (Life-Threatening, Hospitalization, Other)
  Sender: FDA-Public Use
  Company Number: DE-SA-SAC20220428001046

PATIENT
  Age: 72 Year
  Sex: Male
  Weight: 98.6 kg

DRUGS (2)
  1. LANTUS [Suspect]
     Active Substance: INSULIN GLARGINE
     Dosage: 16 IU, QD
  2. MORPHINE [Concomitant]
     Active Substance: MORPHINE
     Dosage: UNK

REACTIONS (14)
  - Terminal state [Unknown]
  - Myocardial infarction [Unknown]
  - COVID-19 [Unknown]
  - Blood urine present [Unknown]
  - Coronary artery stenosis [Not Recovered/Not Resolved]
  - Prostate cancer [Not Recovered/Not Resolved]
  - Tissue infiltration [Unknown]
  - Osteomyelitis [Unknown]
  - Depressed level of consciousness [Unknown]
  - Haematuria [Not Recovered/Not Resolved]
  - Haemoglobin decreased [Not Recovered/Not Resolved]
  - Chest pain [Unknown]
  - Bundle branch block right [Unknown]
  - Metastases to bone marrow [Unknown]

NARRATIVE: CASE EVENT DATE: 20220305
